FAERS Safety Report 17080173 (Version 1)
Quarter: 2019Q4

REPORT INFORMATION
  Report Type: Spontaneous
  Country: US (occurrence: US)
  Receive Date: 20191126
  Receipt Date: 20191126
  Transmission Date: 20200122
  Serious: No
  Sender: FDA-Public Use
  Company Number: None

PATIENT
  Age: 61 Year
  Sex: Female
  Weight: 61.65 kg

DRUGS (1)
  1. COSOPT PF [Suspect]
     Active Substance: DORZOLAMIDE HYDROCHLORIDE\TIMOLOL MALEATE
     Indication: INTRAOCULAR PRESSURE INCREASED
     Dosage: ?          QUANTITY:1 DROP(S);?
     Route: 047

REACTIONS (6)
  - Packaging design issue [None]
  - Product complaint [None]
  - Product use complaint [None]
  - Product packaging difficult to open [None]
  - Device difficult to use [None]
  - Eye injury [None]

NARRATIVE: CASE EVENT DATE: 20191126
